FAERS Safety Report 7604309-X (Version None)
Quarter: 2011Q3

REPORT INFORMATION
  Report Type: 
  Country: None (occurrence: None)
  Receive Date: 20110712
  Receipt Date: 20110630
  Transmission Date: 20111222
  Serious: Yes (Other)
  Sender: FDA-Public Use
  Company Number: PHHY2011ES50749

PATIENT
  Age: 45 Year
  Sex: Female

DRUGS (7)
  1. CHEMOTHERAPEUTICS NOS [Concomitant]
  2. CODEINE [Concomitant]
  3. URSODIOL [Concomitant]
  4. SEREVENT [Concomitant]
  5. METHOTREXATE [Concomitant]
  6. EXJADE [Suspect]
     Indication: IRON OVERLOAD
     Dosage: 4 MG/KG, DAILY
     Route: 048
  7. PAROXETINE HCL [Concomitant]

REACTIONS (1)
  - MACROCYTOSIS [None]
